FAERS Safety Report 7808942-1 (Version None)
Quarter: 2011Q4

REPORT INFORMATION
  Report Type: 
  Country: None (occurrence: None)
  Receive Date: 20111012
  Receipt Date: 20111007
  Transmission Date: 20120403
  Serious: Yes (Other)
  Sender: FDA-Public Use
  Company Number: US-CEPHALON-2011005292

PATIENT
  Sex: Female
  Weight: 47 kg

DRUGS (8)
  1. TREANDA [Suspect]
     Indication: CHRONIC LYMPHOCYTIC LEUKAEMIA
     Route: 042
     Dates: start: 20110801
  2. ALLOPURINOL [Concomitant]
     Dates: start: 20110731, end: 20110822
  3. CIPROFLOXACIN [Concomitant]
     Dates: start: 20110916, end: 20110923
  4. BENICAR HCT [Concomitant]
  5. ACTIVELLA [Concomitant]
  6. LABETALOL HCL [Concomitant]
  7. PROCARDIA XL [Concomitant]
  8. PRAVASTATIN [Concomitant]
     Dates: start: 20110701

REACTIONS (7)
  - URTICARIA [None]
  - WHITE BLOOD CELL COUNT DECREASED [None]
  - RASH [None]
  - LIP SWELLING [None]
  - HAEMOGLOBIN DECREASED [None]
  - RED BLOOD CELL COUNT DECREASED [None]
  - PARAESTHESIA ORAL [None]
